FAERS Safety Report 5970581 (Version 26)
Quarter: 2013Q1

REPORT INFORMATION
  Report Type: Spontaneous
  Country: US (occurrence: US)
  Receive Date: 20060127
  Receipt Date: 20130118
  Transmission Date: 20140127
  Serious: Yes (Hospitalization, Other)
  Sender: FDA-Public Use
  Company Number: PHEH2006US01251

PATIENT
  Age: 60 None
  Sex: Female
  Weight: 81.63 kg

DRUGS (47)
  1. AREDIA [Suspect]
     Dosage: 90 MG, QMO
     Route: 042
     Dates: start: 20010426
  2. ZOMETA [Suspect]
     Indication: PLASMA CELL MYELOMA
     Dosage: 4 MG, QMO
     Route: 042
     Dates: start: 2001, end: 20050603
  3. VIOXX [Suspect]
     Indication: RHEUMATOID ARTHRITIS
     Dosage: 50 MG, UNK
     Dates: start: 2004, end: 2004
  4. MULTIVITAMINS [Concomitant]
  5. QUININE [Concomitant]
  6. ELAVIL [Concomitant]
  7. PROTONIX ^PHARMACIA^ [Concomitant]
  8. CELEBREX [Concomitant]
  9. AMBIEN [Concomitant]
  10. KEFLEX                                  /UNK/ [Concomitant]
     Dosage: 500 MG, UNK
  11. AMOXICILLIN [Concomitant]
  12. PEN-VEE-K [Concomitant]
  13. PLAQUENIL [Concomitant]
  14. REGLAN                                  /USA/ [Concomitant]
  15. AUGMENTIN                               /SCH/ [Concomitant]
  16. CLINDAMYCIN [Concomitant]
  17. PERIOGARD [Concomitant]
  18. FENTANYL [Concomitant]
  19. NEXIUM [Concomitant]
  20. FLAGYL [Concomitant]
  21. BACTRIM [Concomitant]
  22. CIPRO [Concomitant]
  23. SKELAXIN [Concomitant]
  24. VITAMIN D [Concomitant]
  25. HYDROMORPHONE [Concomitant]
  26. CEFAZOLIN [Concomitant]
  27. NEURONTIN [Concomitant]
  28. RADIATION THERAPY [Concomitant]
  29. CHEMOTHERAPEUTICS NOS [Concomitant]
  30. PREMPRO [Concomitant]
  31. LEVAQUIN [Concomitant]
  32. CLARINEX                                /DEN/ [Concomitant]
  33. CLONIDINE [Concomitant]
  34. COMBIVENT                               /GFR/ [Concomitant]
  35. NASONEX [Concomitant]
  36. Z-PAK [Concomitant]
  37. DIFLUCAN [Concomitant]
  38. DURAGESIC [Concomitant]
  39. PEPCID [Concomitant]
  40. FOLATE SODIUM [Concomitant]
  41. PROZAC [Concomitant]
  42. MAGNESIUM OXIDE [Concomitant]
  43. PHENERGAN ^AVENTIS PHARMA^ [Concomitant]
  44. LACTULOSE [Concomitant]
  45. CEFTRIAXONE [Concomitant]
  46. FLEXERIL [Concomitant]
  47. MINERALS NOS [Concomitant]

REACTIONS (95)
  - Urinary incontinence [Unknown]
  - Pneumonia [Unknown]
  - Gastrooesophageal reflux disease [Unknown]
  - Cyst [Unknown]
  - Eye irritation [Unknown]
  - Upper respiratory tract infection [Unknown]
  - Laryngitis [Unknown]
  - Epicondylitis [Unknown]
  - Hiatus hernia [Unknown]
  - Exostosis [Unknown]
  - Back pain [Unknown]
  - Pain in extremity [Unknown]
  - Ligament sprain [Unknown]
  - Fat tissue increased [Unknown]
  - Spinal cord oedema [Unknown]
  - Muscle spasms [Unknown]
  - Clostridium difficile colitis [Unknown]
  - Night sweats [Unknown]
  - Sinusitis [Unknown]
  - Bursitis [Unknown]
  - Oral candidiasis [Unknown]
  - Peroneal nerve palsy [Unknown]
  - Myofascitis [Unknown]
  - Musculoskeletal pain [Unknown]
  - Uterine leiomyoma [Unknown]
  - Fibrosis [Unknown]
  - Somnolence [Unknown]
  - Skin lesion [Unknown]
  - Neck mass [Unknown]
  - Myalgia [Unknown]
  - Diarrhoea [Unknown]
  - Deafness [Unknown]
  - Epistaxis [Unknown]
  - Amnesia [Unknown]
  - Colitis ulcerative [Unknown]
  - Bone swelling [Unknown]
  - Rash pustular [Unknown]
  - Exposed bone in jaw [Unknown]
  - Plasma cell myeloma [Unknown]
  - Malignant neoplasm progression [Unknown]
  - Oesophageal stenosis [Unknown]
  - Corneal abrasion [Unknown]
  - Eye pain [Unknown]
  - Fistula [Unknown]
  - Osteosclerosis [Unknown]
  - Actinomycosis [Unknown]
  - Tubulointerstitial nephritis [Unknown]
  - Tendonitis [Unknown]
  - Bone loss [Unknown]
  - Cellulitis [Unknown]
  - Abscess [Unknown]
  - Foot fracture [Unknown]
  - Multiple sclerosis [Unknown]
  - Temperature intolerance [Unknown]
  - Hypoaesthesia [Unknown]
  - Muscular weakness [Unknown]
  - Antinuclear antibody positive [Unknown]
  - Bone marrow failure [Unknown]
  - Rheumatoid arthritis [Unknown]
  - Arthralgia [Unknown]
  - Neck pain [Unknown]
  - Plasma cell myeloma recurrent [Unknown]
  - Renal failure acute [Unknown]
  - Renal failure chronic [Unknown]
  - Osteonecrosis of jaw [Unknown]
  - Osteomyelitis [Recovering/Resolving]
  - Pain in jaw [Unknown]
  - Mastication disorder [Unknown]
  - Nodule [Unknown]
  - Swelling [Unknown]
  - Oral pustule [Unknown]
  - Abscess oral [Unknown]
  - Mouth ulceration [Unknown]
  - Staphylococcal infection [Unknown]
  - Stomatitis [Unknown]
  - Bone lesion [Unknown]
  - Dysphagia [Unknown]
  - Acquired oesophageal web [Unknown]
  - Asthma [Unknown]
  - Intervertebral disc protrusion [Unknown]
  - Intervertebral disc space narrowing [Unknown]
  - Spinal column stenosis [Unknown]
  - Osteoarthritis [Unknown]
  - Cholelithiasis [Unknown]
  - Arthropathy [Unknown]
  - Spinal osteoarthritis [Unknown]
  - Chondromalacia [Unknown]
  - Dental discomfort [Unknown]
  - Urinary tract infection [Unknown]
  - Renal impairment [Unknown]
  - Depression [Unknown]
  - Bronchitis [Unknown]
  - Ecchymosis [Unknown]
  - Tongue discolouration [Unknown]
  - Anaemia [Unknown]
